FAERS Safety Report 7128603-4 (Version None)
Quarter: 2010Q4

REPORT INFORMATION
  Report Type: 
  Country: None (occurrence: None)
  Receive Date: 20101115
  Receipt Date: 20101105
  Transmission Date: 20110411
  Serious: Yes (Other)
  Sender: FDA-Public Use
  Company Number: 2010SP051910

PATIENT
  Age: 41 Year
  Sex: Female

DRUGS (25)
  1. MIRTAZAPINE [Suspect]
     Indication: AFFECT LABILITY
     Dosage: 15 MG;QD;PO ; 30 MG;QD;PO ; 45 MG;QD;PO ; 30 MG;QD;PO ; 15 MG;QD;PO ; 45 MG;QD;PO
     Route: 048
     Dates: start: 20100609, end: 20100610
  2. MIRTAZAPINE [Suspect]
     Indication: SEDATION
     Dosage: 15 MG;QD;PO ; 30 MG;QD;PO ; 45 MG;QD;PO ; 30 MG;QD;PO ; 15 MG;QD;PO ; 45 MG;QD;PO
     Route: 048
     Dates: start: 20100609, end: 20100610
  3. MIRTAZAPINE [Suspect]
     Indication: AFFECT LABILITY
     Dosage: 15 MG;QD;PO ; 30 MG;QD;PO ; 45 MG;QD;PO ; 30 MG;QD;PO ; 15 MG;QD;PO ; 45 MG;QD;PO
     Route: 048
     Dates: start: 20100611, end: 20100620
  4. MIRTAZAPINE [Suspect]
     Indication: SEDATION
     Dosage: 15 MG;QD;PO ; 30 MG;QD;PO ; 45 MG;QD;PO ; 30 MG;QD;PO ; 15 MG;QD;PO ; 45 MG;QD;PO
     Route: 048
     Dates: start: 20100611, end: 20100620
  5. MIRTAZAPINE [Suspect]
     Indication: AFFECT LABILITY
     Dosage: 15 MG;QD;PO ; 30 MG;QD;PO ; 45 MG;QD;PO ; 30 MG;QD;PO ; 15 MG;QD;PO ; 45 MG;QD;PO
     Route: 048
     Dates: start: 20100630, end: 20100713
  6. MIRTAZAPINE [Suspect]
     Indication: SEDATION
     Dosage: 15 MG;QD;PO ; 30 MG;QD;PO ; 45 MG;QD;PO ; 30 MG;QD;PO ; 15 MG;QD;PO ; 45 MG;QD;PO
     Route: 048
     Dates: start: 20100630, end: 20100713
  7. MIRTAZAPINE [Suspect]
     Indication: AFFECT LABILITY
     Dosage: 15 MG;QD;PO ; 30 MG;QD;PO ; 45 MG;QD;PO ; 30 MG;QD;PO ; 15 MG;QD;PO ; 45 MG;QD;PO
     Route: 048
     Dates: start: 20100714, end: 20100720
  8. MIRTAZAPINE [Suspect]
     Indication: SEDATION
     Dosage: 15 MG;QD;PO ; 30 MG;QD;PO ; 45 MG;QD;PO ; 30 MG;QD;PO ; 15 MG;QD;PO ; 45 MG;QD;PO
     Route: 048
     Dates: start: 20100714, end: 20100720
  9. MIRTAZAPINE [Suspect]
     Indication: AFFECT LABILITY
     Dosage: 15 MG;QD;PO ; 30 MG;QD;PO ; 45 MG;QD;PO ; 30 MG;QD;PO ; 15 MG;QD;PO ; 45 MG;QD;PO
     Route: 048
     Dates: start: 20100721, end: 20100916
  10. MIRTAZAPINE [Suspect]
     Indication: SEDATION
     Dosage: 15 MG;QD;PO ; 30 MG;QD;PO ; 45 MG;QD;PO ; 30 MG;QD;PO ; 15 MG;QD;PO ; 45 MG;QD;PO
     Route: 048
     Dates: start: 20100721, end: 20100916
  11. MIRTAZAPINE [Suspect]
     Indication: AFFECT LABILITY
     Dosage: 15 MG;QD;PO ; 30 MG;QD;PO ; 45 MG;QD;PO ; 30 MG;QD;PO ; 15 MG;QD;PO ; 45 MG;QD;PO
     Route: 048
     Dates: start: 20100917, end: 20100921
  12. MIRTAZAPINE [Suspect]
     Indication: SEDATION
     Dosage: 15 MG;QD;PO ; 30 MG;QD;PO ; 45 MG;QD;PO ; 30 MG;QD;PO ; 15 MG;QD;PO ; 45 MG;QD;PO
     Route: 048
     Dates: start: 20100917, end: 20100921
  13. ZYPREXA [Suspect]
     Indication: AFFECT LABILITY
     Dosage: 10 MG;QD;PO
     Route: 048
     Dates: start: 20100920, end: 20100921
  14. ZYPREXA [Suspect]
     Indication: SEDATION
     Dosage: 10 MG;QD;PO
     Route: 048
     Dates: start: 20100920, end: 20100921
  15. ZYPREXA [Suspect]
     Indication: AFFECT LABILITY
     Dosage: 10 MG;QD;PO
     Route: 048
     Dates: start: 20091101
  16. ZYPREXA [Suspect]
     Indication: SEDATION
     Dosage: 10 MG;QD;PO
     Route: 048
     Dates: start: 20091101
  17. LAMOTRIGINE [Concomitant]
  18. LIMAS [Concomitant]
  19. SEROQUEL [Concomitant]
  20. PROMETHAZINE [Concomitant]
  21. NITRAZEPAM [Concomitant]
  22. ESTAZOLAM [Concomitant]
  23. MAGNESIUM [Concomitant]
  24. ABILIFY [Concomitant]
  25. LEVOMEPROMAZINE MALEATE [Concomitant]

REACTIONS (8)
  - ANTIDEPRESSANT DRUG LEVEL INCREASED [None]
  - CONDITION AGGRAVATED [None]
  - DEHYDRATION [None]
  - LIVER FUNCTION TEST ABNORMAL [None]
  - PORIOMANIA [None]
  - PSYCHIATRIC SYMPTOM [None]
  - PSYCHOMOTOR HYPERACTIVITY [None]
  - RHABDOMYOLYSIS [None]
